FAERS Safety Report 14509078 (Version 1)
Quarter: 2018Q1

REPORT INFORMATION
  Report Type: Report from Study
  Country: US (occurrence: US)
  Receive Date: 20180209
  Receipt Date: 20180209
  Transmission Date: 20180509
  Serious: Yes (Other)
  Sender: FDA-Public Use
  Company Number: US-UCBSA-2018004407

PATIENT
  Age: 73 Year
  Sex: Female

DRUGS (1)
  1. ROTIGOTINE [Suspect]
     Active Substance: ROTIGOTINE
     Indication: RESTLESS LEGS SYNDROME
     Dosage: UNK

REACTIONS (2)
  - Hypertension [Not Recovered/Not Resolved]
  - Brain operation [Not Recovered/Not Resolved]

NARRATIVE: CASE EVENT DATE: 20180130
